FAERS Safety Report 7557057-9 (Version None)
Quarter: 2011Q2

REPORT INFORMATION
  Report Type: 
  Country: None (occurrence: None)
  Receive Date: 20110620
  Receipt Date: 20110607
  Transmission Date: 20111010
  Serious: Yes (Hospitalization)
  Sender: FDA-Public Use
  Company Number: JP-AMGEN-US275672

PATIENT
  Age: 59 Year
  Sex: Male
  Weight: 51 kg

DRUGS (6)
  1. ENBREL [Suspect]
     Dosage: 25 MG, QWK
     Dates: start: 20080425
  2. ENBREL [Suspect]
     Dosage: 25 UNK, QWK
     Route: 058
     Dates: start: 20070601, end: 20070615
  3. PREDNISOLONE [Concomitant]
     Dosage: UNK UNK, UNK
     Route: 065
  4. INFLIXIMAB [Concomitant]
     Dosage: UNK UNK, UNK
     Route: 065
     Dates: start: 20060701
  5. ENBREL [Suspect]
     Indication: RHEUMATOID ARTHRITIS
     Dosage: 25 MG, QWK
     Route: 058
     Dates: start: 20070202, end: 20070511
  6. METHOTREXATE [Concomitant]
     Dosage: UNK UNK, UNK
     Route: 065

REACTIONS (3)
  - KNEE ARTHROPLASTY [None]
  - DEVICE RELATED INFECTION [None]
  - SALMONELLOSIS [None]
